FAERS Safety Report 7993116-4 (Version None)
Quarter: 2011Q4

REPORT INFORMATION
  Report Type: 
  Country: None (occurrence: None)
  Receive Date: 20111219
  Receipt Date: 20110322
  Transmission Date: 20120403
  Serious: No
  Sender: FDA-Public Use
  Company Number: US-ASTRAZENECA-2011SE16252

PATIENT
  Age: 75 Year
  Sex: Male
  Weight: 74.8 kg

DRUGS (3)
  1. CORIG [Concomitant]
     Indication: BLOOD PRESSURE
  2. CRESTOR [Suspect]
     Route: 048
  3. TRICOR [Concomitant]

REACTIONS (3)
  - ABDOMINAL PAIN UPPER [None]
  - MYALGIA [None]
  - MALAISE [None]
